FAERS Safety Report 8815070 (Version 3)
Quarter: 2014Q3

REPORT INFORMATION
  Report Type: Report from Study
  Country: US (occurrence: US)
  Receive Date: 20120928
  Receipt Date: 20140903
  Transmission Date: 20150326
  Serious: Yes (Death)
  Sender: FDA-Public Use
  Company Number: US-ROCHE-1129518

PATIENT
  Sex: Male

DRUGS (1)
  1. HERCEPTIN [Suspect]
     Active Substance: TRASTUZUMAB
     Indication: TESTIS CANCER
     Dosage: MOST RECENT DOSE PRIOR TO DEATH: 07/SEP/2000
     Route: 042
     Dates: start: 20000901

REACTIONS (1)
  - Neoplasm [Fatal]
